FAERS Safety Report 8259483-1 (Version None)
Quarter: 2012Q2

REPORT INFORMATION
  Report Type: 
  Country: None (occurrence: None)
  Receive Date: 20120404
  Receipt Date: 20120326
  Transmission Date: 20120825
  Serious: Yes (Hospitalization)
  Sender: FDA-Public Use
  Company Number: BR-ASTRAZENECA-2011SE54120

PATIENT
  Age: 78 Year
  Sex: Male
  Weight: 95 kg

DRUGS (6)
  1. RASILEZ [Concomitant]
     Route: 048
     Dates: start: 20110801
  2. ATACAND HCT [Suspect]
     Indication: HYPERTENSION
     Dosage: 16/12.5 MG, DAILY
     Route: 048
     Dates: start: 20110801, end: 20110901
  3. ATACAND [Suspect]
     Indication: HYPERTENSION
     Route: 048
     Dates: start: 20110901
  4. SEDATIVE [Suspect]
     Indication: SEDATION
     Route: 065
     Dates: start: 20120301, end: 20120301
  5. METFORMIN HCL [Concomitant]
     Indication: DIABETES MELLITUS
     Route: 048
     Dates: start: 20070101
  6. AMLODIPINE [Suspect]
     Route: 048
     Dates: end: 20110901

REACTIONS (5)
  - RENAL DISORDER [None]
  - MYOCARDIAL INFARCTION [None]
  - ARRHYTHMIA [None]
  - JOINT SWELLING [None]
  - HYPERCHOLESTEROLAEMIA [None]
